APPROVED DRUG PRODUCT: LEVOTHYROXINE SODIUM
Active Ingredient: LEVOTHYROXINE SODIUM
Strength: 500MCG/VIAL
Dosage Form/Route: POWDER;INTRAVENOUS
Application: A217066 | Product #003 | TE Code: AP
Applicant: ZYDUS PHARMACEUTICALS USA INC
Approved: Mar 24, 2023 | RLD: No | RS: No | Type: RX